FAERS Safety Report 13853675 (Version 1)
Quarter: 2017Q3

REPORT INFORMATION
  Report Type: Spontaneous
  Country: US (occurrence: US)
  Receive Date: 20170810
  Receipt Date: 20170810
  Transmission Date: 20171127
  Serious: Yes (Life-Threatening, Other)
  Sender: FDA-Public Use
  Company Number: US-BAYER-2017-148735

PATIENT
  Sex: Female

DRUGS (1)
  1. ALEVE [Suspect]
     Active Substance: NAPROXEN SODIUM
     Dosage: 1 DF, UNK
     Route: 048

REACTIONS (2)
  - Drug hypersensitivity [None]
  - Anaphylactic reaction [Unknown]

NARRATIVE: CASE EVENT DATE: 2008
